FAERS Safety Report 21517308 (Version 1)
Quarter: 2022Q4

REPORT INFORMATION
  Report Type: Spontaneous
  Country: CN (occurrence: None)
  Receive Date: 20221028
  Receipt Date: 20221028
  Transmission Date: 20230113
  Serious: Yes (Other)
  Sender: FDA-Public Use
  Company Number: CN-ROCHE-3206578

PATIENT
  Age: 52 Year
  Sex: Male
  Weight: 50 kg

DRUGS (2)
  1. XELODA [Suspect]
     Active Substance: CAPECITABINE
     Indication: Hepatic cancer
     Route: 048
     Dates: start: 20220812, end: 20220826
  2. OXALIPLATIN [Suspect]
     Active Substance: OXALIPLATIN
     Indication: Hepatic cancer
     Route: 041
     Dates: start: 20220812, end: 20220812

REACTIONS (5)
  - Platelet count decreased [Recovering/Resolving]
  - White blood cell count decreased [Unknown]
  - Haemoglobin decreased [Unknown]
  - Red blood cell count decreased [Unknown]
  - Off label use [Unknown]

NARRATIVE: CASE EVENT DATE: 20220903
